FAERS Safety Report 21989319 (Version 1)
Quarter: 2023Q1

REPORT INFORMATION
  Report Type: Spontaneous
  Country: US (occurrence: None)
  Receive Date: 20230212
  Receipt Date: 20230212
  Transmission Date: 20230417
  Serious: Yes (Disabling)
  Sender: FDA-Public Use
  Company Number: None

PATIENT
  Age: 69 Year
  Sex: Male
  Weight: 111.15 kg

DRUGS (4)
  1. FINASTERIDE [Suspect]
     Active Substance: FINASTERIDE
     Indication: Benign prostatic hyperplasia
     Dosage: OTHER QUANTITY : 1 TABLET(S);?FREQUENCY : DAILY;?
     Route: 048
     Dates: start: 20220704, end: 20221223
  2. TAMSULOSIN [Concomitant]
     Active Substance: TAMSULOSIN
  3. SIMVASTATIN [Concomitant]
     Active Substance: SIMVASTATIN
  4. FAMITODINE [Concomitant]

REACTIONS (8)
  - Anxiety [None]
  - Anger [None]
  - Paranoia [None]
  - Sinusitis [None]
  - Prostatomegaly [None]
  - Head discomfort [None]
  - Calculus bladder [None]
  - Inflammation [None]

NARRATIVE: CASE EVENT DATE: 20221229
